FAERS Safety Report 10528993 (Version 1)
Quarter: 2014Q4

REPORT INFORMATION
  Report Type: Spontaneous
  Country: US (occurrence: US)
  Receive Date: 20141020
  Receipt Date: 20141020
  Transmission Date: 20150528
  Serious: Yes (Other)
  Sender: FDA-Public Use
  Company Number: US-PFIZER INC-2014287083

PATIENT
  Age: 64 Year
  Sex: Female
  Weight: 54 kg

DRUGS (2)
  1. LYRICA [Suspect]
     Active Substance: PREGABALIN
     Indication: TARSAL TUNNEL SYNDROME
  2. LYRICA [Suspect]
     Active Substance: PREGABALIN
     Indication: NEUROPATHY PERIPHERAL
     Dosage: 75 MG, DAILY
     Route: 048

REACTIONS (7)
  - Drug ineffective [Unknown]
  - Neuralgia [Unknown]
  - Foot deformity [Unknown]
  - Arthropathy [Unknown]
  - Arthropathy [Unknown]
  - Condition aggravated [Unknown]
  - Tarsal tunnel syndrome [Unknown]

NARRATIVE: CASE EVENT DATE: 20140120
